FAERS Safety Report 5675234-9 (Version None)
Quarter: 2008Q2

REPORT INFORMATION
  Report Type: 
  Country: None (occurrence: None)
  Receive Date: 20080307
  Receipt Date: 20070402
  Transmission Date: 20081010
  Serious: Yes (Other)
  Sender: FDA-Public Use
  Company Number: T200700382

PATIENT
  Age: 52 Year
  Sex: Female
  Weight: 72.6 kg

DRUGS (3)
  1. OPTIRAY 160 [Suspect]
     Indication: COMPUTERISED TOMOGRAM ABDOMEN
     Dosage: 100 ML, SINGLE, INTRAVENOUS
     Route: 042
     Dates: start: 20070221, end: 20070221
  2. OPTIRAY 350 [Suspect]
     Indication: COMPUTERISED TOMOGRAM THORAX
     Dosage: 150 ML, SINGLE, INTRAVENOUS
     Route: 042
     Dates: start: 20070223, end: 20070223
  3. OPTIRAY 320 [Suspect]
     Indication: COMPUTERISED TOMOGRAM ABDOMEN
     Dosage: 120 ML, SINGLE, INTRAVENOUS
     Route: 042
     Dates: start: 20070305, end: 20070305

REACTIONS (6)
  - ERYTHEMA [None]
  - FEELING HOT [None]
  - FLUSHING [None]
  - MICTURITION URGENCY [None]
  - PULMONARY OEDEMA [None]
  - WOUND ABSCESS [None]
